FAERS Safety Report 25409094 (Version 2)
Quarter: 2025Q2

REPORT INFORMATION
  Report Type: Spontaneous
  Country: UZ (occurrence: UZ)
  Receive Date: 20250607
  Receipt Date: 20250623
  Transmission Date: 20250717
  Serious: Yes (Life-Threatening, Hospitalization, Other)
  Sender: MSN LABORATORIES PRIVATE LIMITED
  Company Number: UZ-MSNLABS-2025MSNLIT01394

PATIENT

DRUGS (21)
  1. BORTEZOMIB [Suspect]
     Active Substance: BORTEZOMIB
     Indication: Autoimmune hepatitis
     Route: 058
     Dates: start: 20241217
  2. BORTEZOMIB [Suspect]
     Active Substance: BORTEZOMIB
     Indication: Infection
  3. BORTEZOMIB [Suspect]
     Active Substance: BORTEZOMIB
     Dosage: 7 DAYS AFTER THE FIRST INJECTION
     Route: 058
     Dates: start: 20241221
  4. TACROLIMUS [Concomitant]
     Active Substance: TACROLIMUS
     Dosage: 1.5 MG TWICE A DAY (BID), LONG-TERM
     Route: 048
  5. METHYLPREDNISOLONE [Concomitant]
     Active Substance: METHYLPREDNISOLONE
     Route: 065
  6. METHYLPREDNISOLONE [Concomitant]
     Active Substance: METHYLPREDNISOLONE
     Dosage: FOR 3 DAYS FOLLOWED BY TAPERING OF THE DOSE
     Route: 065
  7. METHYLPREDNISOLONE [Concomitant]
     Active Substance: METHYLPREDNISOLONE
     Dosage: LONG TERM
     Route: 048
  8. AZATHIOPRINE [Concomitant]
     Active Substance: AZATHIOPRINE
     Route: 048
  9. MEROPENEM [Concomitant]
     Active Substance: MEROPENEM
     Indication: Product used for unknown indication
     Route: 042
  10. AMIKACIN [Concomitant]
     Active Substance: AMIKACIN
     Indication: Product used for unknown indication
     Route: 042
  11. VANCOMYCIN [Concomitant]
     Active Substance: VANCOMYCIN
     Indication: Product used for unknown indication
     Route: 042
  12. ALBUMIN HUMAN [Concomitant]
     Active Substance: ALBUMIN HUMAN
     Route: 042
  13. Fresh Frozen Plasma (FFP) [Concomitant]
     Route: 065
  14. OMEPRAZOLE [Concomitant]
     Active Substance: OMEPRAZOLE
     Route: 048
  15. FAMOTIDINE [Concomitant]
     Active Substance: FAMOTIDINE
     Route: 048
  16. ENOXAPARIN SODIUM [Concomitant]
     Active Substance: ENOXAPARIN SODIUM
     Route: 058
  17. ASPIRIN [Concomitant]
     Active Substance: ASPIRIN
     Indication: Product used for unknown indication
     Dosage: LONG-TERM
     Route: 048
  18. ACETYLCYSTEINE [Concomitant]
     Active Substance: ACETYLCYSTEINE
     Indication: Product used for unknown indication
     Route: 048
  19. URSODIOL [Concomitant]
     Active Substance: URSODIOL
     Indication: Product used for unknown indication
     Dosage: LONG-TERM
     Route: 048
  20. ALPROSTADIL [Concomitant]
     Active Substance: ALPROSTADIL
     Indication: Product used for unknown indication
     Dosage: 120 MCG/DAY
     Route: 042
  21. Salofalk [Concomitant]
     Indication: Product used for unknown indication
     Route: 048

REACTIONS (6)
  - Polyneuropathy [Not Recovered/Not Resolved]
  - Rectal haemorrhage [Recovered/Resolved]
  - Cytopenia [Not Recovered/Not Resolved]
  - Leukopenia [Recovered/Resolved]
  - Anaemia [Recovered/Resolved]
  - Headache [Recovered/Resolved]
